FAERS Safety Report 4930777-8 (Version None)
Quarter: 2006Q1

REPORT INFORMATION
  Report Type: 
  Country: None (occurrence: None)
  Receive Date: 20060227
  Receipt Date: 20060213
  Transmission Date: 20060701
  Serious: Yes (Disabling, Other)
  Sender: FDA-Public Use
  Company Number: 2005135483

PATIENT
  Age: 60 Year
  Sex: Male
  Weight: 90.7194 kg

DRUGS (6)
  1. VIAGRA [Suspect]
     Indication: ILL-DEFINED DISORDER
     Dosage: (PRN)
     Dates: start: 20040701
  2. CONCERTA [Concomitant]
  3. RITALIN (METYLPHENIDATE HYDROCHLORIDE) [Concomitant]
  4. LIPITOR [Concomitant]
  5. PREDNISONE TAB [Concomitant]
  6. ASPIRIN [Concomitant]

REACTIONS (15)
  - ASTHENOPIA [None]
  - BLINDNESS UNILATERAL [None]
  - BLOOD CHOLESTEROL INCREASED [None]
  - BLOOD PRESSURE INCREASED [None]
  - CAROTID ARTERY ATHEROMA [None]
  - EYE PAIN [None]
  - EYELID PTOSIS [None]
  - HEADACHE [None]
  - LOW DENSITY LIPOPROTEIN INCREASED [None]
  - OPTIC ATROPHY [None]
  - OPTIC ISCHAEMIC NEUROPATHY [None]
  - PANIC ATTACK [None]
  - RETINAL VASCULAR DISORDER [None]
  - SPLINTER HAEMORRHAGES [None]
  - TENSION [None]
